FAERS Safety Report 24776277 (Version 1)
Quarter: 2024Q4

REPORT INFORMATION
  Report Type: Spontaneous
  Country: US (occurrence: US)
  Receive Date: 20241226
  Receipt Date: 20241226
  Transmission Date: 20250115
  Serious: No
  Sender: GLAXOSMITHKLINE
  Company Number: US-GSK-US2024159626

PATIENT
  Sex: Male
  Weight: 97.52 kg

DRUGS (2)
  1. TRELEGY ELLIPTA [Suspect]
     Active Substance: FLUTICASONE FUROATE\UMECLIDINIUM BROMIDE\VILANTEROL TRIFENATATE
     Indication: Asthma
     Dosage: 1 PUFF(S), QD,100-62.5-25MCG,MOUTH DAILY, RINSE AFTER EACH USE
     Route: 055
     Dates: start: 202312
  2. ALBUTEROL SULFATE [Concomitant]
     Active Substance: ALBUTEROL SULFATE
     Indication: Asthma
     Dosage: 2 PUFF(S),90MCG EVERY 4-6 HR AS NEEDED
     Dates: start: 202312

REACTIONS (2)
  - Dyspnoea exertional [Not Recovered/Not Resolved]
  - Illness [Unknown]
